FAERS Safety Report 13521250 (Version 1)
Quarter: 2017Q2

REPORT INFORMATION
  Report Type: Spontaneous
  Country: US (occurrence: US)
  Receive Date: 20170508
  Receipt Date: 20170508
  Transmission Date: 20170830
  Serious: No
  Sender: FDA-Public Use
  Company Number: US-PFIZER INC-2017188478

PATIENT
  Age: 65 Year
  Sex: Female

DRUGS (3)
  1. XELJANZ [Suspect]
     Active Substance: TOFACITINIB CITRATE
     Indication: RHEUMATOID ARTHRITIS
     Dosage: 5 MG, 2X/DAY
     Route: 048
     Dates: start: 20170415
  2. CELEBREX [Suspect]
     Active Substance: CELECOXIB
     Dosage: UNK, AS NEEDED
     Dates: end: 20170427
  3. CELEBREX [Suspect]
     Active Substance: CELECOXIB
     Dosage: 400 MG, 2X/DAY

REACTIONS (1)
  - Condition aggravated [Unknown]
